FAERS Safety Report 9944223 (Version 1)
Quarter: 2014Q1

REPORT INFORMATION
  Report Type: Report from Study
  Country: US (occurrence: US)
  Receive Date: 20140303
  Receipt Date: 20140303
  Transmission Date: 20141002
  Serious: No
  Sender: FDA-Public Use
  Company Number: US-ABBVIE-13P-163-1052063-00

PATIENT
  Age: 51 Year
  Sex: Female
  Weight: 63.56 kg

DRUGS (3)
  1. HUMIRA [Suspect]
     Indication: ANKYLOSING SPONDYLITIS
     Dates: start: 20120607
  2. IBUPROFEN [Concomitant]
     Indication: PAIN
  3. LORAZEPAM [Concomitant]
     Indication: ANXIETY

REACTIONS (7)
  - Asthenia [Recovering/Resolving]
  - Heart rate irregular [Recovered/Resolved]
  - Condition aggravated [Recovered/Resolved]
  - Dyspnoea [Recovered/Resolved]
  - Palpitations [Recovering/Resolving]
  - Syncope [Recovered/Resolved]
  - Paraesthesia [Unknown]
